FAERS Safety Report 5949441-1 (Version None)
Quarter: 2008Q4

REPORT INFORMATION
  Report Type: 
  Country: None (occurrence: None)
  Receive Date: 20081112
  Receipt Date: 20081103
  Transmission Date: 20090506
  Serious: Yes (Other)
  Sender: FDA-Public Use
  Company Number: PHHY2008DE27185

PATIENT
  Age: 63 Year
  Sex: Female

DRUGS (7)
  1. SANDIMMUNE [Suspect]
     Indication: DERMATITIS ATOPIC
     Dosage: 180 MG/D
     Route: 048
     Dates: start: 20081014
  2. APROVEL [Concomitant]
     Indication: HYPERTENSION
  3. ACE INHIBITOR NOS [Concomitant]
     Indication: HYPERTENSION
  4. HYDROCHLOROTHIAZIDE [Concomitant]
     Indication: HYPERTENSION
  5. JODTHYROX [Concomitant]
  6. CARBIZIDE [Concomitant]
  7. NITROLINGUAL [Concomitant]
     Indication: BLOOD PRESSURE ABNORMAL
     Dosage: PER REAL NEED

REACTIONS (2)
  - BLOOD PRESSURE FLUCTUATION [None]
  - HYPERTENSIVE CRISIS [None]
